FAERS Safety Report 8303695 (Version 3)
Quarter: 2012Q4

REPORT INFORMATION
  Report Type: Report from Study
  Country: DE (occurrence: DE)
  Receive Date: 20111220
  Receipt Date: 20120928
  Transmission Date: 20130627
  Serious: Yes (Death, Hospitalization)
  Sender: FDA-Public Use
  Company Number: DE-ROCHE-1023339

PATIENT
  Age: 64 Year
  Sex: Female
  Weight: 61 kg

DRUGS (4)
  1. AVASTIN [Suspect]
     Indication: BREAST CANCER
     Route: 042
     Dates: start: 20111012, end: 20111023
  2. AVASTIN [Suspect]
     Route: 042
     Dates: start: 20111123
  3. UNACID [Suspect]
     Indication: OSTEONECROSIS
     Route: 065
     Dates: start: 20111204, end: 20111209
  4. CORTICOSTEROIDS (UNK INGREDIENTS) [Concomitant]

REACTIONS (3)
  - Neoplasm malignant [Fatal]
  - Metastases to liver [Fatal]
  - Osteonecrosis of jaw [Not Recovered/Not Resolved]
